FAERS Safety Report 8390393 (Version 2)
Quarter: 2012Q4

REPORT INFORMATION
  Report Type: 
  Country: US (occurrence: US)
  Receive Date: 20120203
  Receipt Date: 20121128
  Transmission Date: 20130627
  Serious: Yes (Other)
  Sender: FDA-Public Use
  Company Number: US-ASTRAZENECA-2012SE06014

PATIENT
  Age: 59 Year
  Sex: Female

DRUGS (2)
  1. ATACAND HCT [Suspect]
     Route: 048
  2. TOPROL XL [Suspect]
     Route: 048

REACTIONS (2)
  - Hypertension [Unknown]
  - Drug dose omission [Unknown]
